FAERS Safety Report 6668781-4 (Version None)
Quarter: 2010Q2

REPORT INFORMATION
  Report Type: 
  Country: None (occurrence: None)
  Receive Date: 20100406
  Receipt Date: 20100401
  Transmission Date: 20101027
  Serious: Yes (Death)
  Sender: FDA-Public Use
  Company Number: JP-BAYER-201011615BYL

PATIENT
  Age: 65 Year
  Sex: Female

DRUGS (3)
  1. FLUDARA [Suspect]
     Indication: SPLENIC MARGINAL ZONE LYMPHOMA STAGE IV
     Dosage: UNIT DOSE: 10 MG
     Route: 048
     Dates: start: 20090630, end: 20090701
  2. VFEND [Concomitant]
     Indication: SINUSITIS
     Route: 048
     Dates: start: 20090604, end: 20090804
  3. BARACLUDE [Concomitant]
     Indication: HEPATITIS B
     Route: 048
     Dates: start: 20070901, end: 20090804

REACTIONS (3)
  - ASPARTATE AMINOTRANSFERASE INCREASED [None]
  - DEATH [None]
  - VARICELLA [None]
